FAERS Safety Report 11894043 (Version 1)
Quarter: 2016Q1

REPORT INFORMATION
  Report Type: Spontaneous
  Country: US (occurrence: US)
  Receive Date: 20160107
  Receipt Date: 20160107
  Transmission Date: 20160526
  Serious: No
  Sender: FDA-Public Use
  Company Number: US-009507513-1512USA013898

PATIENT
  Age: 66 Year
  Sex: Male

DRUGS (3)
  1. MIRAPEX [Interacting]
     Active Substance: PRAMIPEXOLE DIHYDROCHLORIDE
     Indication: PARKINSON^S DISEASE
     Dosage: UNK MG, TID
  2. BELSOMRA [Suspect]
     Active Substance: SUVOREXANT
     Indication: SLEEP DISORDER
     Dosage: 1 PILL AT NIGHT TIME
     Route: 048
     Dates: start: 201508, end: 2015
  3. SINEMET CR [Interacting]
     Active Substance: CARBIDOPA\LEVODOPA
     Indication: PARKINSON^S DISEASE
     Dosage: 50/200 MG, QID
     Route: 048

REACTIONS (2)
  - Rash [Unknown]
  - Drug interaction [Unknown]

NARRATIVE: CASE EVENT DATE: 201508
